FAERS Safety Report 17416839 (Version 1)
Quarter: 2020Q1

REPORT INFORMATION
  Report Type: Spontaneous
  Country: US (occurrence: US)
  Receive Date: 20200213
  Receipt Date: 20200213
  Transmission Date: 20200409
  Serious: No
  Sender: FDA-Public Use
  Company Number: None

PATIENT
  Age: 26 Year
  Sex: Female
  Weight: 44.55 kg

DRUGS (8)
  1. CLONAZEPAM 1MG [Concomitant]
     Active Substance: CLONAZEPAM
     Dates: start: 20180508
  2. LORATADINE 10MG [Concomitant]
     Active Substance: LORATADINE
  3. PEG 3350 POWDER PACKETS [Concomitant]
     Dates: start: 20181207
  4. EPIDIOLEX [Suspect]
     Active Substance: CANNABIDIOL
     Indication: EPILEPSY
     Route: 048
     Dates: start: 20190905
  5. ASHLYNA TABLETS [Concomitant]
     Dates: start: 20190506
  6. LORAZEPAM 2MG [Concomitant]
     Active Substance: LORAZEPAM
     Dates: start: 20190206
  7. PANTOPRAZOLE 40MG [Concomitant]
     Active Substance: PANTOPRAZOLE SODIUM
     Dates: start: 20180901
  8. BANZEL 400MG [Concomitant]
     Dates: start: 20161202

REACTIONS (1)
  - Diarrhoea [None]

NARRATIVE: CASE EVENT DATE: 20200213
